FAERS Safety Report 26116094 (Version 1)
Quarter: 2025Q4

REPORT INFORMATION
  Report Type: Spontaneous
  Country: AU (occurrence: AU)
  Receive Date: 20251203
  Receipt Date: 20251203
  Transmission Date: 20260118
  Serious: Yes (Hospitalization, Other)
  Sender: Onesource Specialty Pharma
  Company Number: AU-STRIDES ARCOLAB LIMITED-2025OS001369

PATIENT
  Sex: Female

DRUGS (4)
  1. LABETALOL [Suspect]
     Active Substance: LABETALOL
     Indication: Hypertension
     Dosage: UNK
     Route: 065
  2. LABETALOL [Suspect]
     Active Substance: LABETALOL
     Dosage: UNK
     Route: 042
  3. HYDRALAZINE [Suspect]
     Active Substance: HYDRALAZINE HYDROCHLORIDE
     Indication: Hypertension
     Dosage: UNK
     Route: 065
  4. METHYLDOPA [Suspect]
     Active Substance: METHYLDOPA
     Indication: Hypertension
     Dosage: UNK
     Route: 065

REACTIONS (5)
  - Photopsia [Unknown]
  - Hyperreflexia [Unknown]
  - Superimposed pre-eclampsia [Unknown]
  - Drug ineffective [Unknown]
  - Maternal exposure during pregnancy [Unknown]
